FAERS Safety Report 4760004-6 (Version None)
Quarter: 2005Q3

REPORT INFORMATION
  Report Type: 
  Country: None (occurrence: None)
  Receive Date: 20050902
  Receipt Date: 20020411
  Transmission Date: 20060218
  Serious: Yes (Other)
  Sender: FDA-Public Use
  Company Number: US-AMGEN-US011693

PATIENT
  Sex: Female
  Weight: 61.3 kg

DRUGS (7)
  1. EPOGEN [Suspect]
     Indication: DIALYSIS
     Route: 058
     Dates: start: 19990101
  2. BLOOD CELLS, PACKED HUMAN [Concomitant]
     Dates: start: 20020315
  3. NEPHRO-VITE [Concomitant]
     Dates: start: 19991001
  4. RENAGEL [Concomitant]
     Dates: start: 20000201
  5. FERROUS SULFATE [Concomitant]
  6. POTASSIUM CHLORIDE [Concomitant]
     Dates: start: 20000413
  7. HECTORAL [Concomitant]

REACTIONS (4)
  - ANTI-ERYTHROPOIETIN ANTIBODY POSITIVE [None]
  - APLASIA PURE RED CELL [None]
  - DYSFUNCTIONAL UTERINE BLEEDING [None]
  - PERITONITIS [None]
